FAERS Safety Report 24287849 (Version 5)
Quarter: 2025Q2

REPORT INFORMATION
  Report Type: Spontaneous
  Country: US (occurrence: US)
  Receive Date: 20240905
  Receipt Date: 20250422
  Transmission Date: 20250717
  Serious: No
  Sender: PFIZER
  Company Number: US-PFIZER INC-202400250140

PATIENT
  Age: 30 Year
  Sex: Female
  Weight: 42.18 kg

DRUGS (1)
  1. VELSIPITY [Suspect]
     Active Substance: ETRASIMOD ARGININE
     Indication: Colitis ulcerative
     Dosage: 2 MG ORALLY ONCE DAILY
     Route: 048
     Dates: start: 20240805

REACTIONS (4)
  - Chest pain [Unknown]
  - Headache [Unknown]
  - Vein disorder [Unknown]
  - Pain [Unknown]

NARRATIVE: CASE EVENT DATE: 20240801
